FAERS Safety Report 4726822-5 (Version None)
Quarter: 2005Q3

REPORT INFORMATION
  Report Type: 
  Country: None (occurrence: None)
  Receive Date: 20050725
  Receipt Date: 20050318
  Transmission Date: 20060218
  Serious: No
  Sender: FDA-Public Use
  Company Number: USA050393603

PATIENT
  Age: 17 Year
  Sex: Female

DRUGS (1)
  1. STRATTERA [Suspect]
     Dosage: 120 MG

REACTIONS (4)
  - AGGRESSION [None]
  - ANGER [None]
  - ANTISOCIAL BEHAVIOUR [None]
  - PRESCRIBED OVERDOSE [None]
